FAERS Safety Report 17300643 (Version 3)
Quarter: 2021Q2

REPORT INFORMATION
  Report Type: Spontaneous
  Country: US (occurrence: US)
  Receive Date: 20200122
  Receipt Date: 20210409
  Transmission Date: 20210716
  Serious: No
  Sender: FDA-Public Use
  Company Number: US-JNJFOC-20200129430

PATIENT
  Age: 40 Year
  Sex: Female
  Weight: 66.28 kg

DRUGS (2)
  1. SPRAVATO [Suspect]
     Active Substance: ESKETAMINE
     Indication: DEPRESSION
  2. SPRAVATO [Suspect]
     Active Substance: ESKETAMINE
     Dates: start: 20191230

REACTIONS (2)
  - Device issue [Recovered/Resolved]
  - Underdose [Recovered/Resolved]
